FAERS Safety Report 9521128 (Version 1)
Quarter: 2013Q1

REPORT INFORMATION
  Report Type: Spontaneous
  Country: US (occurrence: None)
  Receive Date: 20130305
  Receipt Date: 20130305
  Transmission Date: 20140127
  Serious: Yes (Other)
  Sender: FDA-Public Use
  Company Number: 163-21880-11032888

PATIENT
  Age: 62 Year
  Sex: Male

DRUGS (10)
  1. REVLIMID [Suspect]
     Dosage: 25 MG, 3 OF 4 WEEKS, PO
     Route: 048
     Dates: start: 201012
  2. ZOFRAN (ONDANSETRON HYDROCHLORIDE) (UNKNOWN) [Concomitant]
  3. DILAUDID (HYDROMORPHONE HYDROCHLORIDE) (UNKNOWN) [Concomitant]
  4. NEURONTIN (GABAPENTIN) (UNKNOWN) [Concomitant]
  5. MOTRIN (IBUPROFEN) (UNKNOWN) [Concomitant]
  6. HCTZ (HYDROCHLOROTHIAZIDE) (UNKNOWN) [Concomitant]
  7. ZOMETA (ZOLEDRONIC ACID) (UNKNOWN) [Concomitant]
  8. AVODART (DUTASTERIDE) (UNKNOWN) [Concomitant]
  9. FENTANYL (FENTANYL) (POULTICE OR PATCH) [Concomitant]
  10. OMEPRAZOLE (OMEPRAZOLE) (UNKNOWN) [Concomitant]

REACTIONS (4)
  - Haemoglobin decreased [None]
  - Platelet count decreased [None]
  - White blood cell count decreased [None]
  - Drug intolerance [None]
